FAERS Safety Report 8202871-X (Version None)
Quarter: 2012Q1

REPORT INFORMATION
  Report Type: 
  Country: None (occurrence: None)
  Receive Date: 20120312
  Receipt Date: 20120312
  Transmission Date: 20120608
  Serious: Yes (Hospitalization, Other)
  Sender: FDA-Public Use
  Company Number: None

PATIENT
  Age: 74 Year
  Sex: Male
  Weight: 85.275 kg

DRUGS (2)
  1. HYDROXYUREA [Concomitant]
     Dosage: 1 CAPSULE
     Route: 048
     Dates: start: 20120131, end: 20120311
  2. ANAGRELIDE HCL [Suspect]
     Indication: THROMBOCYTOPENIA
     Dosage: 1CAPSULES
     Route: 048
     Dates: start: 20111013, end: 20120130

REACTIONS (14)
  - HAEMOPTYSIS [None]
  - DRUG INEFFECTIVE [None]
  - WEIGHT DECREASED [None]
  - ASTHENIA [None]
  - NAUSEA [None]
  - EPISTAXIS [None]
  - INSOMNIA [None]
  - DYSPNOEA [None]
  - VOMITING [None]
  - RECTAL HAEMORRHAGE [None]
  - QUALITY OF LIFE DECREASED [None]
  - HEADACHE [None]
  - PAIN [None]
  - PNEUMOTHORAX [None]
